FAERS Safety Report 5392281-5 (Version None)
Quarter: 2007Q3

REPORT INFORMATION
  Report Type: 
  Country: None (occurrence: None)
  Receive Date: 20070720
  Receipt Date: 20070709
  Transmission Date: 20080115
  Serious: No
  Sender: FDA-Public Use
  Company Number: US-ASTRAZENECA-2006UW07340

PATIENT
  Age: 623 Month
  Sex: Female

DRUGS (3)
  1. SEROQUEL [Suspect]
     Indication: SCHIZOPHRENIA
     Route: 048
     Dates: start: 20050401, end: 20051101
  2. RISPERDAL [Suspect]
     Dosage: 1 TO 4 MG
     Dates: start: 20000801, end: 20020701
  3. RISPERDAL [Suspect]
     Dosage: 1 TO 4 MG
     Dates: start: 20061101, end: 20070101

REACTIONS (1)
  - DIABETES MELLITUS [None]
